FAERS Safety Report 5809617-0 (Version None)
Quarter: 2008Q3

REPORT INFORMATION
  Report Type: 
  Country: None (occurrence: None)
  Receive Date: 20080715
  Receipt Date: 20080708
  Transmission Date: 20090109
  Serious: Yes (Hospitalization)
  Sender: FDA-Public Use
  Company Number: US-ROCHE-574569

PATIENT
  Sex: Female

DRUGS (4)
  1. BONIVA [Suspect]
     Indication: OSTEOPOROSIS
     Route: 048
     Dates: start: 20060101, end: 20080401
  2. SEREVENT [Concomitant]
  3. NEURONTIN [Concomitant]
  4. LASIX [Concomitant]

REACTIONS (3)
  - ARTERIAL INJURY [None]
  - DYSPHAGIA [None]
  - ULCER HAEMORRHAGE [None]
